FAERS Safety Report 4453247-2 (Version None)
Quarter: 2004Q3

REPORT INFORMATION
  Report Type: 
  Country: None (occurrence: None)
  Receive Date: 20040902
  Receipt Date: 20040510
  Transmission Date: 20050211
  Serious: No
  Sender: FDA-Public Use
  Company Number: 200417824BWH

PATIENT
  Sex: Male

DRUGS (4)
  1. LEVITRA [Suspect]
     Indication: ERECTILE DYSFUNCTION
     Dosage: 10 MG, ONCE, ORAL
     Route: 048
     Dates: start: 20040508
  2. HYDROCORTISONE [Concomitant]
  3. SYNTHROID [Concomitant]
  4. VIAGRA [Concomitant]

REACTIONS (2)
  - HEADACHE [None]
  - INSOMNIA [None]
